FAERS Safety Report 23295723 (Version 1)
Quarter: 2023Q4

REPORT INFORMATION
  Report Type: Report from Study
  Country: NL (occurrence: NL)
  Receive Date: 20231214
  Receipt Date: 20231214
  Transmission Date: 20240110
  Serious: Yes (Life-Threatening, Other)
  Sender: FDA-Public Use
  Company Number: NL-AstraZeneca-2023A278186

PATIENT
  Age: 9 Month
  Sex: Male
  Weight: 8 kg

DRUGS (2)
  1. SYNAGIS [Suspect]
     Active Substance: PALIVIZUMAB
     Indication: Antiviral prophylaxis
     Dosage: MONTHLY
     Route: 030
     Dates: start: 20231206
  2. SYNAGIS [Suspect]
     Active Substance: PALIVIZUMAB
     Dosage: MONTHLY
     Route: 030
     Dates: start: 20231206

REACTIONS (2)
  - Bronchopulmonary dysplasia [Not Recovered/Not Resolved]
  - Cardiac disorder [Not Recovered/Not Resolved]
